FAERS Safety Report 7461603-3 (Version None)
Quarter: 2011Q2

REPORT INFORMATION
  Report Type: 
  Country: None (occurrence: None)
  Receive Date: 20110506
  Receipt Date: 20110425
  Transmission Date: 20111010
  Serious: Yes (Other)
  Sender: FDA-Public Use
  Company Number: CA-JNJFOC-20110410893

PATIENT
  Sex: Male
  Weight: 104 kg

DRUGS (3)
  1. MICARDIS [Concomitant]
     Indication: ILL-DEFINED DISORDER
  2. REMICADE [Suspect]
     Indication: PSORIASIS
     Route: 042
  3. VENTOLIN [Concomitant]
     Indication: ILL-DEFINED DISORDER
     Route: 055

REACTIONS (4)
  - OXYGEN SATURATION DECREASED [None]
  - DYSPNOEA [None]
  - INFUSION RELATED REACTION [None]
  - HYPERHIDROSIS [None]
